FAERS Safety Report 7291483-0 (Version None)
Quarter: 2011Q1

REPORT INFORMATION
  Report Type: 
  Country: None (occurrence: None)
  Receive Date: 20110214
  Receipt Date: 20110209
  Transmission Date: 20110831
  Serious: Yes (Other)
  Sender: FDA-Public Use
  Company Number: NO-ELI_LILLY_AND_COMPANY-NO201007001999

PATIENT
  Sex: Female

DRUGS (4)
  1. ZYPREXA [Suspect]
     Indication: PSYCHOTIC DISORDER
     Dosage: 15 MG, UNKNOWN
     Route: 048
     Dates: start: 20100611, end: 20100702
  2. ORFIRIL [Concomitant]
     Indication: AFFECTIVE DISORDER
     Dosage: 900 MG, DAILY (1/D)
     Dates: start: 20100607, end: 20100712
  3. SEROQUEL [Concomitant]
     Indication: PSYCHOTIC DISORDER
     Dosage: 800 MG, UNK
     Route: 048
  4. LAMICTAL [Concomitant]
     Indication: AFFECTIVE DISORDER
     Dosage: 100 MG, DAILY (1/D)

REACTIONS (1)
  - NEUTROPENIA [None]
